FAERS Safety Report 8188010 (Version 2)
Quarter: 2019Q1

REPORT INFORMATION
  Report Type: Spontaneous
  Country: US (occurrence: US)
  Receive Date: 20111018
  Receipt Date: 20190124
  Transmission Date: 20190418
  Serious: No
  Sender: FDA-Public Use
  Company Number: US-ASTRAZENECA-2011SE47888

PATIENT
  Sex: Female

DRUGS (1)
  1. SYMBICORT [Suspect]
     Active Substance: BUDESONIDE\FORMOTEROL FUMARATE DIHYDRATE
     Dosage: 160/4.5 MCG, UNKNOWN UNKNOWN
     Route: 055

REACTIONS (5)
  - Ligament sprain [Unknown]
  - Accident [Unknown]
  - Limb injury [Unknown]
  - Pneumonia [Unknown]
  - Product dose omission [Unknown]
